FAERS Safety Report 13850681 (Version 1)
Quarter: 2017Q3

REPORT INFORMATION
  Report Type: Spontaneous
  Country: US (occurrence: US)
  Receive Date: 20170809
  Receipt Date: 20170809
  Transmission Date: 20171127
  Serious: No
  Sender: FDA-Public Use
  Company Number: US-GLAXOSMITHKLINE-US2017119248

PATIENT
  Sex: Female

DRUGS (2)
  1. NICODERM CQ [Suspect]
     Active Substance: NICOTINE
     Indication: SMOKING CESSATION THERAPY
     Dosage: UNK
  2. NICODERM CQ [Suspect]
     Active Substance: NICOTINE
     Indication: SMOKING CESSATION THERAPY
     Dosage: UNK, YEARS AGO

REACTIONS (7)
  - Anxiety [Unknown]
  - Application site rash [Recovering/Resolving]
  - Application site bruise [Unknown]
  - Malaise [Recovered/Resolved]
  - Erythema [Unknown]
  - Palpitations [Unknown]
  - Nausea [Recovered/Resolved]
